FAERS Safety Report 9097491 (Version 2)
Quarter: 2013Q2

REPORT INFORMATION
  Report Type: Spontaneous
  Country: US (occurrence: US)
  Receive Date: 20130212
  Receipt Date: 20130607
  Transmission Date: 20140414
  Serious: Yes (Death, Hospitalization)
  Sender: FDA-Public Use
  Company Number: US-B.I. PHARMACEUTICALS,INC./RIDGEFIELD-2013-BI-03928BP

PATIENT
  Age: 89 Year
  Sex: Female
  Weight: 49.9 kg

DRUGS (6)
  1. PRADAXA [Suspect]
     Indication: ANTICOAGULANT THERAPY
     Dosage: 150 MG
     Route: 048
     Dates: start: 20120214, end: 20120404
  2. PRADAXA [Suspect]
     Indication: ATRIAL FIBRILLATION
  3. POTASSIUM CHLORIDE [Concomitant]
     Dosage: 20 MEQ
     Route: 048
     Dates: start: 2008, end: 20120405
  4. LASIX [Concomitant]
     Dosage: 80 MG
     Route: 048
     Dates: start: 2009, end: 20120405
  5. COREG [Concomitant]
     Dosage: 20 MG
     Route: 048
     Dates: start: 2009, end: 20120405
  6. DIOVAN [Concomitant]
     Dosage: 80 MG
     Route: 048
     Dates: start: 2009, end: 20120405

REACTIONS (7)
  - Lower gastrointestinal haemorrhage [Fatal]
  - Fall [Unknown]
  - Anaemia [Unknown]
  - Renal failure acute [Unknown]
  - Shock haemorrhagic [Unknown]
  - Cardiac failure congestive [Unknown]
  - Vaginal haemorrhage [Unknown]
